APPROVED DRUG PRODUCT: LEVOFLOXACIN
Active Ingredient: LEVOFLOXACIN
Strength: EQ 750MG/30ML (EQ 25MG/ML)
Dosage Form/Route: INJECTABLE;INJECTION
Application: A205540 | Product #002 | TE Code: AP
Applicant: GLAND PHARMA LTD
Approved: Apr 22, 2020 | RLD: No | RS: No | Type: RX